FAERS Safety Report 13337029 (Version 1)
Quarter: 2017Q1

REPORT INFORMATION
  Report Type: Spontaneous
  Country: US (occurrence: US)
  Receive Date: 20170314
  Receipt Date: 20170314
  Transmission Date: 20170428
  Serious: No
  Sender: FDA-Public Use
  Company Number: None

PATIENT
  Age: 32 Year
  Sex: Female
  Weight: 51.75 kg

DRUGS (1)
  1. ZYRTEC [Suspect]
     Active Substance: CETIRIZINE HYDROCHLORIDE
     Indication: MULTIPLE ALLERGIES
     Dosage: ?          QUANTITY:1 CAPSULE(S);?
     Route: 048
     Dates: start: 20170312, end: 20170314

REACTIONS (6)
  - Anxiety [None]
  - Suicidal ideation [None]
  - Crying [None]
  - Fatigue [None]
  - Aggression [None]
  - Feeling abnormal [None]

NARRATIVE: CASE EVENT DATE: 20170314
